FAERS Safety Report 9761213 (Version 1)
Quarter: 2013Q4

REPORT INFORMATION
  Report Type: Report from Study
  Country: US (occurrence: US)
  Receive Date: 20131216
  Receipt Date: 20131216
  Transmission Date: 20140711
  Serious: Yes (Hospitalization, Other)
  Sender: FDA-Public Use
  Company Number: US-ELI_LILLY_AND_COMPANY-US201312002616

PATIENT
  Age: 84 Year
  Sex: Female

DRUGS (5)
  1. TADALAFIL [Suspect]
     Indication: PULMONARY HYPERTENSION
     Dosage: 40 MG, QD
  2. EVISTA [Concomitant]
  3. POTASSIUM [Concomitant]
  4. MAGNESIUM                          /00123201/ [Concomitant]
  5. VITAMIN D                          /00107901/ [Concomitant]

REACTIONS (6)
  - Syncope [Unknown]
  - Blood pressure decreased [Unknown]
  - Oxygen saturation abnormal [Unknown]
  - Dizziness [Recovered/Resolved]
  - Dry skin [Unknown]
  - Musculoskeletal stiffness [Unknown]
